FAERS Safety Report 18652238 (Version 1)
Quarter: 2020Q4

REPORT INFORMATION
  Report Type: Spontaneous
  Country: US (occurrence: US)
  Receive Date: 20201222
  Receipt Date: 20201222
  Transmission Date: 20210114
  Serious: Yes (Death, Other)
  Sender: FDA-Public Use
  Company Number: US-PURDUE-USA-2020-0181240

PATIENT
  Sex: Male

DRUGS (1)
  1. OXYCONTIN [Suspect]
     Active Substance: OXYCODONE HYDROCHLORIDE
     Indication: PAIN
     Dosage: UNK
     Route: 048
     Dates: start: 1998

REACTIONS (6)
  - Drug dependence [Unknown]
  - General physical health deterioration [Unknown]
  - Gun shot wound [Fatal]
  - Mental impairment [Unknown]
  - Radiculopathy [Unknown]
  - Completed suicide [Fatal]

NARRATIVE: CASE EVENT DATE: 2012
